FAERS Safety Report 19685777 (Version 4)
Quarter: 2022Q1

REPORT INFORMATION
  Report Type: Spontaneous
  Country: JP (occurrence: JP)
  Receive Date: 20210811
  Receipt Date: 20220302
  Transmission Date: 20220424
  Serious: Yes (Hospitalization)
  Sender: FDA-Public Use
  Company Number: JP-JNJFOC-20210801150

PATIENT
  Age: 69 Year
  Sex: Female
  Weight: 30.6 kg

DRUGS (22)
  1. PALIPERIDONE PALMITATE [Suspect]
     Active Substance: PALIPERIDONE PALMITATE
     Indication: Schizophrenia
     Dosage: PALIPERIDONE PALMITATE:25MG
     Route: 030
     Dates: start: 20210331, end: 202106
  2. PALIPERIDONE PALMITATE [Suspect]
     Active Substance: PALIPERIDONE PALMITATE
     Route: 030
     Dates: start: 20210728
  3. PALIPERIDONE PALMITATE [Suspect]
     Active Substance: PALIPERIDONE PALMITATE
  4. CORTRIL [Concomitant]
     Active Substance: HYDROCORTISONE
     Route: 048
  5. VONOPRAZAN FUMARATE [Concomitant]
     Active Substance: VONOPRAZAN FUMARATE
     Route: 048
  6. AMITIZA [Concomitant]
     Active Substance: LUBIPROSTONE
     Dosage: AFTER BREAKFAST, AT BEDTIME
     Route: 048
     Dates: start: 20210721
  7. AMITIZA [Concomitant]
     Active Substance: LUBIPROSTONE
     Dosage: AFTER BREAKFAST AND DINNER
     Route: 048
     Dates: start: 20210317, end: 2021
  8. DAYVIGO [Concomitant]
     Active Substance: LEMBOREXANT
     Dosage: AT BEDTIME
     Route: 048
     Dates: start: 20210721
  9. RHUBARB [Concomitant]
     Active Substance: RHUBARB
     Dosage: AT BEDTIME
     Route: 048
     Dates: start: 20210721
  10. RHUBARB [Concomitant]
     Active Substance: RHUBARB
     Dosage: AT BEDTIME?PER ORAL MEDICATION
     Route: 048
     Dates: start: 20210317, end: 2021
  11. LODOPIN [Concomitant]
     Dosage: FINE GRAIN, AT BEDTIME
     Route: 048
     Dates: start: 20210721
  12. SENNOSIDES A AND B [Concomitant]
     Active Substance: SENNOSIDES A AND B
     Dosage: AT BEDTIME
     Route: 048
     Dates: start: 20210721
  13. SENNOSIDES A AND B [Concomitant]
     Active Substance: SENNOSIDES A AND B
     Dosage: AT BEDTIME
     Route: 048
     Dates: start: 20210317, end: 2021
  14. ELOBIXIBAT [Concomitant]
     Active Substance: ELOBIXIBAT
     Dosage: BEFORE BREAKFAST
     Route: 048
     Dates: start: 20210721
  15. ELOBIXIBAT [Concomitant]
     Active Substance: ELOBIXIBAT
     Dosage: BEFORE BREAKFAST
     Route: 048
     Dates: start: 20210317, end: 2021
  16. EDOXABAN TOSYLATE [Concomitant]
     Active Substance: EDOXABAN TOSYLATE
     Dosage: AFTER DINNER
     Route: 048
     Dates: start: 20210723
  17. URSO [Concomitant]
     Active Substance: URSODIOL
     Dosage: AFTER BREAKFAST AND DINNER
     Route: 048
     Dates: start: 20210721
  18. URSO [Concomitant]
     Active Substance: URSODIOL
     Dosage: AFTER BREAKFAST AND DINNER
     Route: 048
     Dates: start: 20210317, end: 2021
  19. SPIRONOLACTONE [Concomitant]
     Active Substance: SPIRONOLACTONE
     Dosage: AFTER BREAKFAST
     Route: 048
     Dates: start: 20210721
  20. SPIRONOLACTONE [Concomitant]
     Active Substance: SPIRONOLACTONE
     Dosage: AFTER BREAKFAST
     Route: 048
     Dates: start: 20210317, end: 2021
  21. BELSOMRA [Concomitant]
     Active Substance: SUVOREXANT
     Dosage: AT BEDTIME
     Route: 048
     Dates: start: 20210317
  22. QUAZEPAM [Concomitant]
     Active Substance: QUAZEPAM
     Dosage: AT BEDTIME
     Route: 048
     Dates: start: 20210317

REACTIONS (2)
  - Hypoglycaemia [Recovered/Resolved]
  - Fall [Recovered/Resolved]

NARRATIVE: CASE EVENT DATE: 20210727
